FAERS Safety Report 7769340-2 (Version None)
Quarter: 2011Q3

REPORT INFORMATION
  Report Type: 
  Country: None (occurrence: None)
  Receive Date: 20110922
  Receipt Date: 20110919
  Transmission Date: 20111222
  Serious: No
  Sender: FDA-Public Use
  Company Number: US-PFIZER INC-2011222982

PATIENT
  Sex: Female
  Weight: 86 kg

DRUGS (1)
  1. BENZYLPENICILLOYL-POLYLYSINE [Suspect]

REACTIONS (1)
  - URTICARIA [None]
